FAERS Safety Report 9727614 (Version 2)
Quarter: 2014Q2

REPORT INFORMATION
  Report Type: Spontaneous
  Country: US (occurrence: US)
  Receive Date: 20131203
  Receipt Date: 20140527
  Transmission Date: 20141212
  Serious: Yes (Other)
  Sender: FDA-Public Use
  Company Number: US-BAYER-2013-143757

PATIENT
  Age: 53 Year
  Sex: Female
  Weight: 88.44 kg

DRUGS (6)
  1. YAZ [Suspect]
     Dosage: UNK
     Dates: start: 200608
  2. QVAR [Concomitant]
     Indication: ASTHMA
     Dosage: 80 MG, UNK
     Dates: start: 2002
  3. SINGULAIR [Concomitant]
     Indication: ASTHMA
     Dosage: 10 MG, UNK
     Dates: start: 2002
  4. VENTOLIN [Concomitant]
     Indication: ASTHMA
     Dosage: UNK
     Dates: start: 2002
  5. ASTELIN [Concomitant]
     Dosage: 137 MCG
     Dates: start: 2004
  6. PROVENTIL [Concomitant]
     Dosage: 90 MCG

REACTIONS (15)
  - Cerebrovascular accident [None]
  - Cerebral infarction [None]
  - Thalamic infarction [None]
  - Injury [None]
  - Pain [None]
  - General physical health deterioration [None]
  - Anxiety [None]
  - Emotional distress [None]
  - Pain [None]
  - Blindness [None]
  - Headache [None]
  - Migraine with aura [None]
  - Visual impairment [None]
  - Optic disc disorder [None]
  - Hemianopia [None]
